FAERS Safety Report 5484724-3 (Version None)
Quarter: 2007Q4

REPORT INFORMATION
  Report Type: 
  Country: None (occurrence: None)
  Receive Date: 20071010
  Receipt Date: 20070926
  Transmission Date: 20080405
  Serious: Yes (Other)
  Sender: FDA-Public Use
  Company Number: 018873

PATIENT
  Age: 60 Year
  Sex: Male
  Weight: 70.3 kg

DRUGS (6)
  1. WARFARIN SODIUM [Suspect]
     Indication: THROMBOSIS PROPHYLAXIS
     Dosage: 2 MG, QD, ORAL
     Route: 048
     Dates: start: 20070909
  2. INDOCIN [Suspect]
     Dosage: 1 CAPS., TID, ORAL
     Route: 048
     Dates: start: 20070920, end: 20070923
  3. DILANTIN [Suspect]
     Indication: CONVULSION PROPHYLAXIS
     Dosage: 200 MG, BID, ORAL
     Route: 048
  4. PRIMIDONE (PRIMIDONE) TABLET [Concomitant]
  5. TYLENOL (CAPLET) [Concomitant]
  6. VITAMINS [Concomitant]

REACTIONS (7)
  - CONVULSION [None]
  - DRUG INTERACTION [None]
  - HYPOTENSION [None]
  - LETHARGY [None]
  - PRURITUS [None]
  - RASH GENERALISED [None]
  - RASH MACULAR [None]
